FAERS Safety Report 20110595 (Version 1)
Quarter: 2021Q4

REPORT INFORMATION
  Report Type: Spontaneous
  Country: US (occurrence: US)
  Receive Date: 20211124
  Receipt Date: 20211124
  Transmission Date: 20220303
  Serious: No
  Sender: FDA-Public Use
  Company Number: US-NOVOPROD-854686

PATIENT
  Sex: Female

DRUGS (4)
  1. NOVOLOG [Suspect]
     Active Substance: INSULIN ASPART
     Indication: Type 2 diabetes mellitus
     Dosage: 2 UNITS FOR BREAKFAST AND 5-6 UNITS AT LUNCH AND DINNER, STARTED OVER 10 YEARS AGO
     Route: 058
  2. LANTUS [Concomitant]
     Active Substance: INSULIN GLARGINE
     Indication: Product used for unknown indication
     Dosage: UNK
     Route: 058
  3. DEVICE [Suspect]
     Active Substance: DEVICE
     Indication: Type 2 diabetes mellitus
     Dosage: 2 UNITS FOR BREAKFAST AND 5-6 UNITS AT LUNCH AND DINNER, STARTED OVER 10 YEARS AGO
     Route: 058
  4. DEVICE [Suspect]
     Active Substance: DEVICE
     Indication: Product used for unknown indication
     Route: 058

REACTIONS (1)
  - Hearing aid user [Not Recovered/Not Resolved]

NARRATIVE: CASE EVENT DATE: 20150101
